FAERS Safety Report 9038909 (Version 1)
Quarter: 2013Q1

REPORT INFORMATION
  Report Type: Spontaneous
  Country: US (occurrence: None)
  Receive Date: 20130123
  Receipt Date: 20130123
  Transmission Date: 20140127
  Serious: Yes (Other)
  Sender: FDA-Public Use
  Company Number: None

PATIENT
  Age: 77 Year
  Sex: Male
  Weight: 86.18 kg

DRUGS (1)
  1. IMIQUIMOD [Suspect]
     Dosage: APPLY TO LESION ONE DROP FOR 5DAYS A WEEK FOR 6 WEEKS.
     Route: 061
     Dates: start: 20121128, end: 20130104

REACTIONS (2)
  - Dizziness [None]
  - Balance disorder [None]
